FAERS Safety Report 13115592 (Version 2)
Quarter: 2017Q1

REPORT INFORMATION
  Report Type: Spontaneous
  Country: NL (occurrence: NL)
  Receive Date: 20170114
  Receipt Date: 20170122
  Transmission Date: 20170428
  Serious: Yes (Other)
  Sender: FDA-Public Use
  Company Number: NL-009507513-1701NLD005578

PATIENT
  Sex: Female

DRUGS (2)
  1. SINEMET [Suspect]
     Active Substance: CARBIDOPA\LEVODOPA
     Dosage: UNK
     Route: 048
     Dates: start: 200701, end: 2016
  2. SINEMET [Suspect]
     Active Substance: CARBIDOPA\LEVODOPA
     Indication: PARKINSON^S DISEASE
     Dosage: FIVE TIMES A HALF FROM 62.5 (MG) TABLET
     Route: 048
     Dates: start: 2016

REACTIONS (2)
  - Wrong technique in product usage process [Unknown]
  - Deep brain stimulation [Unknown]

NARRATIVE: CASE EVENT DATE: 2016
